FAERS Safety Report 15313581 (Version 1)
Quarter: 2018Q3

REPORT INFORMATION
  Report Type: Spontaneous
  Country: DE (occurrence: DE)
  Receive Date: 20180824
  Receipt Date: 20180824
  Transmission Date: 20181010
  Serious: Yes (Congenital Anomaly, Other)
  Sender: FDA-Public Use
  Company Number: DE-CONCORDIA PHARMACEUTICALS INC.-GSH201808-003038

PATIENT
  Sex: Male
  Weight: .34 kg

DRUGS (3)
  1. CYTOTEC [Concomitant]
     Active Substance: MISOPROSTOL
     Indication: LABOUR INDUCTION
     Dates: start: 20170430, end: 20170430
  2. FOLIO FORTE [Concomitant]
     Active Substance: FOLIC ACID\VITAMINS
     Indication: PROPHYLAXIS OF NEURAL TUBE DEFECT
     Dates: start: 20161101, end: 20170420
  3. HYDROXYCHLOROQUINE [Suspect]
     Active Substance: HYDROXYCHLOROQUINE
     Indication: COLLAGEN DISORDER
     Dosage: 0 ? 20.5 GESTATIONAL WEEK, 4 MONTHS 25 DAYS
     Route: 064
     Dates: start: 20161206, end: 20170430

REACTIONS (1)
  - Spina bifida [Not Recovered/Not Resolved]
